FAERS Safety Report 4446931-8 (Version None)
Quarter: 2004Q3

REPORT INFORMATION
  Report Type: 
  Country: None (occurrence: None)
  Receive Date: 20040908
  Receipt Date: 20040824
  Transmission Date: 20050211
  Serious: Yes (Hospitalization)
  Sender: FDA-Public Use
  Company Number: 2004-BP-06693BP

PATIENT
  Age: 62 Year
  Sex: Male

DRUGS (15)
  1. MICARDIS [Suspect]
     Indication: CARDIOVASCULAR DISORDER
     Dates: start: 20020314
  2. MICARDIS [Suspect]
     Indication: CEREBROVASCULAR ACCIDENT
     Dates: start: 20020314
  3. MICARDIS [Suspect]
     Indication: MYOCARDIAL INFARCTION
     Dates: start: 20020314
  4. MICARDIS [Suspect]
     Indication: PROPHYLAXIS
     Dates: start: 20020314
  5. RAMIPRIL [Suspect]
     Indication: CARDIOVASCULAR DISORDER
     Dosage: PO
     Route: 048
     Dates: start: 20020314
  6. RAMIPRIL [Suspect]
     Indication: CEREBROVASCULAR ACCIDENT
     Dosage: PO
     Route: 048
     Dates: start: 20020314
  7. RAMIPRIL [Suspect]
     Indication: MYOCARDIAL INFARCTION
     Dosage: PO
     Route: 048
     Dates: start: 20020314
  8. RAMIPRIL [Suspect]
     Indication: PROPHYLAXIS
     Dosage: PO
     Route: 048
     Dates: start: 20020314
  9. DICLOFENAC (DICLOFENAC) (NR) [Suspect]
     Dates: end: 20040804
  10. LIPITOR [Concomitant]
  11. OXAZEPAM [Concomitant]
  12. SELOKEEN ZOC (METOPROLOL SUCCINATE) [Concomitant]
  13. REMERON [Concomitant]
  14. TRAMADOL HCL [Concomitant]
  15. AUGMENTIN [Concomitant]

REACTIONS (3)
  - PNEUMONIA [None]
  - PULMONARY EMBOLISM [None]
  - RENAL FAILURE [None]
